FAERS Safety Report 7973855-1 (Version None)
Quarter: 2011Q4

REPORT INFORMATION
  Report Type: 
  Country: None (occurrence: None)
  Receive Date: 20111213
  Receipt Date: 20111207
  Transmission Date: 20120403
  Serious: Yes (Hospitalization, Other)
  Sender: FDA-Public Use
  Company Number: BR-ROCHE-717115

PATIENT
  Sex: Female
  Weight: 60 kg

DRUGS (24)
  1. METFORMIN HCL [Concomitant]
  2. OMEPRAZOLE [Concomitant]
  3. ACTEMRA [Suspect]
     Route: 042
  4. CARBAMAZEPINE [Concomitant]
     Indication: DEPRESSION
     Dosage: AT NIGHT
  5. PREDNISONE TAB [Concomitant]
  6. ACTEMRA [Suspect]
     Route: 042
  7. ACTEMRA [Suspect]
     Route: 042
  8. ACTEMRA [Suspect]
     Route: 042
  9. METHOTREXATE [Concomitant]
  10. INSULIN [Concomitant]
     Dosage: 26 U/DAY
  11. CLONAZEPAM [Concomitant]
  12. EPILEPTIL [Concomitant]
  13. LEVOTHYROXINE SODIUM [Concomitant]
  14. ACTEMRA [Suspect]
     Route: 042
  15. ACTEMRA [Suspect]
     Route: 042
  16. TRAMADOL HCL [Concomitant]
  17. PANTOPRAZOLE [Concomitant]
  18. CARBOLITIUM [Concomitant]
     Indication: DEPRESSION
  19. TETREX [Concomitant]
  20. ACTEMRA [Suspect]
     Indication: RHEUMATOID ARTHRITIS
     Dosage: ROUTE: ENDOVENOUS; FORM: INFUSION
     Route: 042
  21. CITONEURIN [Concomitant]
  22. ACTEMRA [Suspect]
     Route: 042
  23. FLUOXETINE HCL [Concomitant]
  24. LEVOTHYROXINE SODIUM [Concomitant]

REACTIONS (19)
  - JOINT SWELLING [None]
  - PAIN [None]
  - OEDEMA PERIPHERAL [None]
  - THERAPEUTIC RESPONSE DECREASED [None]
  - SEROMA [None]
  - PAIN IN EXTREMITY [None]
  - OSTEOMYELITIS [None]
  - NERVOUSNESS [None]
  - HAND DEFORMITY [None]
  - DRY SKIN [None]
  - BREAST DISORDER [None]
  - MEDICAL DEVICE COMPLICATION [None]
  - FALL [None]
  - LOWER LIMB FRACTURE [None]
  - DEPRESSION [None]
  - BACTERIAL INFECTION [None]
  - PETECHIAE [None]
  - ARTHRALGIA [None]
  - MEMORY IMPAIRMENT [None]
